FAERS Safety Report 10081318 (Version 3)
Quarter: 2014Q2

REPORT INFORMATION
  Report Type: Spontaneous
  Country: JP (occurrence: JP)
  Receive Date: 20140416
  Receipt Date: 20140623
  Transmission Date: 20141212
  Serious: Yes (Hospitalization)
  Sender: FDA-Public Use
  Company Number: JP-MYLANLABS-2014S1008187

PATIENT
  Age: 78 Year
  Sex: Male
  Weight: 61.1 kg

DRUGS (6)
  1. CARBOPLATIN [Suspect]
     Indication: LUNG NEOPLASM MALIGNANT
     Route: 041
     Dates: start: 20140212
  2. DEXART [Suspect]
     Indication: PRODUCT USED FOR UNKNOWN INDICATION
     Route: 041
     Dates: start: 20140212
  3. TS-1 [Concomitant]
     Indication: LUNG NEOPLASM MALIGNANT
     Dosage: 60 MG CAPSULES
     Route: 048
     Dates: start: 20140212, end: 20140225
  4. METHYCOBAL [Concomitant]
     Indication: ANAEMIA
     Dosage: TABLETS
     Route: 048
     Dates: start: 20140203
  5. PROEMEND [Concomitant]
     Indication: PRODUCT USED FOR UNKNOWN INDICATION
     Dosage: INJECTION
     Route: 041
     Dates: start: 20140212, end: 20140212
  6. ALOXI [Concomitant]
     Indication: PRODUCT USED FOR UNKNOWN INDICATION
     Dosage: 0.75 MG INJECTION
     Route: 041
     Dates: start: 20140212, end: 20140212

REACTIONS (2)
  - Thrombosis [Recovered/Resolved]
  - Diarrhoea [Recovered/Resolved]
